FAERS Safety Report 7819006-5 (Version None)
Quarter: 2011Q4

REPORT INFORMATION
  Report Type: 
  Country: None (occurrence: None)
  Receive Date: 20111018
  Receipt Date: 20111011
  Transmission Date: 20120403
  Serious: Yes (Other)
  Sender: FDA-Public Use
  Company Number: IE-JNJFOC-20110603241

PATIENT
  Sex: Female

DRUGS (6)
  1. ABILIFY [Concomitant]
     Indication: ILL-DEFINED DISORDER
  2. SIMPONI [Suspect]
     Indication: PSORIATIC ARTHROPATHY
     Route: 058
     Dates: start: 20100705, end: 20110101
  3. PANTOPRAZOLE [Concomitant]
     Indication: ILL-DEFINED DISORDER
  4. ASPIRIN [Concomitant]
     Indication: ILL-DEFINED DISORDER
  5. RISPERIDONE [Concomitant]
  6. DICLOFENAC SODIUM [Concomitant]
     Indication: ILL-DEFINED DISORDER

REACTIONS (1)
  - MENTAL STATUS CHANGES [None]
